FAERS Safety Report 6102219-0 (Version None)
Quarter: 2009Q1

REPORT INFORMATION
  Report Type: 
  Country: None (occurrence: None)
  Receive Date: 20090227
  Receipt Date: 20080225
  Transmission Date: 20090719
  Serious: Yes (Other)
  Sender: FDA-Public Use
  Company Number: 549220

PATIENT
  Sex: Female
  Weight: 61.2 kg

DRUGS (2)
  1. ACCUTANE [Suspect]
     Indication: ACNE
     Dates: start: 20011225, end: 20020528
  2. DEPO-PROVERA (MEDROXYPROGESTERONE ACETATE) [Concomitant]

REACTIONS (7)
  - ANAEMIA [None]
  - ANXIETY [None]
  - COLITIS ULCERATIVE [None]
  - DEPRESSION [None]
  - EATING DISORDER [None]
  - INFLAMMATORY BOWEL DISEASE [None]
  - PANIC ATTACK [None]
